FAERS Safety Report 21235580 (Version 1)
Quarter: 2022Q3

REPORT INFORMATION
  Report Type: Spontaneous
  Country: US (occurrence: US)
  Receive Date: 20220821
  Receipt Date: 20220821
  Transmission Date: 20221027
  Serious: No
  Sender: FDA-Public Use
  Company Number: US-SA-SAC20220815000601

PATIENT
  Sex: Female

DRUGS (6)
  1. DUPIXENT [Suspect]
     Active Substance: DUPILUMAB
     Indication: Illness
     Dosage: 300 MG, QOW
     Route: 058
  2. REVLIMID [Concomitant]
     Active Substance: LENALIDOMIDE
  3. VERAPAMIL [Concomitant]
     Active Substance: VERAPAMIL HYDROCHLORIDE
  4. METOPROLOL TARTRATE [Concomitant]
     Active Substance: METOPROLOL TARTRATE
  5. LETROZOLE [Concomitant]
     Active Substance: LETROZOLE
  6. COLACE [Concomitant]
     Active Substance: DOCUSATE SODIUM

REACTIONS (4)
  - Pleural effusion [Unknown]
  - Dyspnoea [Unknown]
  - Oedema peripheral [Unknown]
  - Abdominal distension [Unknown]
